FAERS Safety Report 6710835-8 (Version None)
Quarter: 2010Q2

REPORT INFORMATION
  Report Type: 
  Country: None (occurrence: None)
  Receive Date: 20100505
  Receipt Date: 20100426
  Transmission Date: 20101027
  Serious: No
  Sender: FDA-Public Use
  Company Number: US-BIOGENIDEC-2010BI005750

PATIENT
  Age: 40 Year
  Sex: Female

DRUGS (1)
  1. TYSABRI [Suspect]
     Indication: MULTIPLE SCLEROSIS
     Route: 042
     Dates: start: 20070720

REACTIONS (6)
  - DIZZINESS [None]
  - FATIGUE [None]
  - FOREIGN BODY [None]
  - NASAL CAVITY MASS [None]
  - NASAL DISORDER [None]
  - NAUSEA [None]
